FAERS Safety Report 15503398 (Version 1)
Quarter: 2018Q4

REPORT INFORMATION
  Report Type: Spontaneous
  Country: US (occurrence: US)
  Receive Date: 20181015
  Receipt Date: 20181015
  Transmission Date: 20190205
  Serious: No
  Sender: FDA-Public Use
  Company Number: None

PATIENT
  Age: 25 Year
  Sex: Male
  Weight: 108 kg

DRUGS (1)
  1. DULOXOTINE 60MG ER [Suspect]
     Active Substance: DULOXETINE
     Indication: PELVIC PAIN
     Dosage: ?          QUANTITY:1 CAPSULE(S);?
     Route: 048
     Dates: start: 20180826

REACTIONS (1)
  - Ejaculation failure [None]
